FAERS Safety Report 8462162-9 (Version None)
Quarter: 2012Q2

REPORT INFORMATION
  Report Type: 
  Country: None (occurrence: None)
  Receive Date: 20120625
  Receipt Date: 20120619
  Transmission Date: 20120825
  Serious: Yes (Other)
  Sender: FDA-Public Use
  Company Number: US-JNJFOC-20120517368

PATIENT
  Sex: Female

DRUGS (7)
  1. DOXORUBICIN HCL [Suspect]
     Dosage: EVERY 14D-4 CYCLES-ARM A AND B;POWDER:10,20,50,100,150MG VIALS;2MG/ML SOLUTION:10,20,50,200MG VIALS.
     Route: 065
  2. CYCLOPHOSPHAMIDE [Suspect]
     Indication: BREAST CANCER
     Dosage: EVERY 14 DAYS FOR 4 CYCLES IN ARM A AND B
     Route: 065
  3. BEVACIZUMAB [Suspect]
     Indication: BREAST CANCER
     Dosage: EVERY 14 DAYS FOR 18 CYCLES (CYCLE 9-26 IN ARM A AND CYCLE 9-30 IN ARM B)
     Route: 065
  4. DOXORUBICIN HCL [Suspect]
     Indication: BREAST CANCER
     Dosage: EVERY 14 DAYS FOR 4 CYCLES IN ARM A AND B
     Route: 042
  5. PACLITAXEL [Suspect]
     Indication: BREAST CANCER
     Dosage: EVERY 14 DAYS FOR 4 CYCLES IN ARM A AND B, CYCLE 5-8
     Route: 065
  6. RADIATION THERAPY NOS [Concomitant]
     Indication: BREAST CANCER
     Route: 065
  7. HORMONAL TREATMENT NOS [Concomitant]
     Indication: BREAST CANCER
     Route: 065

REACTIONS (1)
  - ASPARTATE AMINOTRANSFERASE INCREASED [None]
